FAERS Safety Report 11879332 (Version 3)
Quarter: 2016Q1

REPORT INFORMATION
  Report Type: Spontaneous
  Country: JP (occurrence: JP)
  Receive Date: 20151230
  Receipt Date: 20160122
  Transmission Date: 20160526
  Serious: Yes (Hospitalization, Other)
  Sender: FDA-Public Use
  Company Number: JP-009507513-1511JPN011277

PATIENT
  Age: 54 Year
  Sex: Male
  Weight: 48 kg

DRUGS (2)
  1. BRIDION [Suspect]
     Active Substance: SUGAMMADEX
     Dosage: 200 MG, QD
     Route: 042
     Dates: start: 20150611, end: 20150611
  2. BRIDION [Suspect]
     Active Substance: SUGAMMADEX
     Indication: NEUROMUSCULAR BLOCKADE REVERSAL
     Dosage: 200MG DAILY, DIVIDED DOSE FREQUENCY UNKNOWN
     Route: 042
     Dates: start: 20141023, end: 20141023

REACTIONS (3)
  - Tooth extraction [Recovered/Resolved]
  - Erythema [Recovered/Resolved]
  - Drug hypersensitivity [Recovered/Resolved]

NARRATIVE: CASE EVENT DATE: 20141023
